FAERS Safety Report 10996406 (Version 2)
Quarter: 2015Q2

REPORT INFORMATION
  Report Type: Report from Study
  Country: BR (occurrence: BR)
  Receive Date: 20150408
  Receipt Date: 20150430
  Transmission Date: 20150821
  Serious: Yes (Other)
  Sender: FDA-Public Use
  Company Number: BR-ROCHE-1561079

PATIENT
  Sex: Female
  Weight: 89 kg

DRUGS (4)
  1. ALENIA (BRAZIL) [Concomitant]
     Active Substance: BUDESONIDE\FORMOTEROL FUMARATE
     Route: 065
     Dates: start: 2011
  2. FORASEQ (BRAZIL) [Concomitant]
     Active Substance: BUDESONIDE\FORMOTEROL FUMARATE
     Route: 065
     Dates: start: 2011
  3. XOLAIR [Suspect]
     Active Substance: OMALIZUMAB
     Indication: ASTHMA
     Dosage: 2,5 DF, EVERY 15 DAYS
     Route: 058
     Dates: start: 2011
  4. XOLAIR [Suspect]
     Active Substance: OMALIZUMAB
     Route: 058

REACTIONS (7)
  - Weight increased [Recovering/Resolving]
  - Drug ineffective [Unknown]
  - Contusion [Unknown]
  - Skin discolouration [Not Recovered/Not Resolved]
  - Weight decreased [Recovering/Resolving]
  - Swelling [Recovering/Resolving]
  - Local swelling [Unknown]
